FAERS Safety Report 9831550 (Version 2)
Quarter: 2014Q1

REPORT INFORMATION
  Report Type: Spontaneous
  Country: US (occurrence: US)
  Receive Date: 20140121
  Receipt Date: 20140210
  Transmission Date: 20141002
  Serious: Yes (Hospitalization)
  Sender: FDA-Public Use
  Company Number: US-SA-2014SA007431

PATIENT
  Age: 85 Year
  Sex: Female

DRUGS (3)
  1. LANTUS [Suspect]
     Indication: TYPE 2 DIABETES MELLITUS
     Dosage: TAKEN FROM: 10 YEARS. DOSE:35 UNIT(S)
     Route: 058
  2. NOVOLOG [Concomitant]
  3. NOVOLIN [Concomitant]

REACTIONS (1)
  - Malaise [Unknown]
